FAERS Safety Report 21269260 (Version 1)
Quarter: 2022Q3

REPORT INFORMATION
  Report Type: Spontaneous
  Country: JP (occurrence: JP)
  Receive Date: 20220830
  Receipt Date: 20220830
  Transmission Date: 20221027
  Serious: Yes (Life-Threatening, Other)
  Sender: FDA-Public Use
  Company Number: JP-ASTELLAS-2022JP012832

PATIENT
  Age: 57 Year
  Sex: Male

DRUGS (9)
  1. PROGRAF [Suspect]
     Active Substance: TACROLIMUS
     Indication: Prophylaxis against graft versus host disease
     Dosage: UNK UNK, UNKNOWN FREQ.
     Route: 065
  2. FLUDARABINE PHOSPHATE [Suspect]
     Active Substance: FLUDARABINE PHOSPHATE
     Indication: Bone marrow conditioning regimen
     Dosage: UNK UNK, UNKNOWN FREQ.
     Route: 065
  3. BUSULFAN [Suspect]
     Active Substance: BUSULFAN
     Indication: Bone marrow conditioning regimen
     Dosage: UNK UNK, UNKNOWN FREQ.
     Route: 065
  4. MELPHALAN [Suspect]
     Active Substance: MELPHALAN
     Indication: Bone marrow conditioning regimen
     Dosage: UNK UNK, UNKNOWN FREQ.
     Route: 065
  5. METHOTREXATE [Concomitant]
     Active Substance: METHOTREXATE
     Indication: Prophylaxis against graft versus host disease
     Dosage: UNK UNK, UNKNOWN FREQ.
     Route: 065
  6. AMBISOME [Concomitant]
     Active Substance: AMPHOTERICIN B
     Indication: Pneumonia fungal
     Dosage: UNK UNK, UNKNOWN FREQ.
     Route: 065
  7. POSACONAZOLE [Concomitant]
     Active Substance: POSACONAZOLE
     Indication: Pneumonia fungal
     Dosage: UNK UNK, UNKNOWN FREQ.
     Route: 065
  8. DEFIBROTIDE SODIUM [Concomitant]
     Active Substance: DEFIBROTIDE SODIUM
     Indication: Venoocclusive liver disease
     Dosage: UNK UNK, UNKNOWN FREQ.
     Route: 065
  9. DEFIBROTIDE SODIUM [Concomitant]
     Active Substance: DEFIBROTIDE SODIUM
     Indication: Venoocclusive liver disease

REACTIONS (8)
  - Venoocclusive liver disease [Unknown]
  - Pneumonia fungal [Unknown]
  - Ascites [Unknown]
  - Refractoriness to platelet transfusion [Unknown]
  - Hyperbilirubinaemia [Recovering/Resolving]
  - Thrombocytopenia [Unknown]
  - Liver disorder [Recovering/Resolving]
  - Weight increased [Unknown]
